FAERS Safety Report 11544343 (Version 1)
Quarter: 2015Q3

REPORT INFORMATION
  Report Type: Spontaneous
  Country: US (occurrence: None)
  Receive Date: 20150923
  Receipt Date: 20150923
  Transmission Date: 20151125
  Serious: Yes (Life-Threatening)
  Sender: FDA-Public Use
  Company Number: None

PATIENT
  Age: 33 Year
  Sex: Female

DRUGS (3)
  1. TRAZODONE [Concomitant]
     Active Substance: TRAZODONE HYDROCHLORIDE
  2. OLANZAPINE .68 MG [Suspect]
     Active Substance: OLANZAPINE
  3. ZIPRASIDONE. [Suspect]
     Active Substance: ZIPRASIDONE
     Indication: SCHIZOPHRENIA
     Dosage: 2 PILLS
     Route: 048
     Dates: start: 20141201, end: 20150922

REACTIONS (3)
  - Dyspnoea [None]
  - Eye disorder [None]
  - Drug interaction [None]

NARRATIVE: CASE EVENT DATE: 20150918
